FAERS Safety Report 7071134-0 (Version None)
Quarter: 2010Q4

REPORT INFORMATION
  Report Type: 
  Country: None (occurrence: None)
  Receive Date: 20101029
  Receipt Date: 20101019
  Transmission Date: 20110411
  Serious: Yes (Other)
  Sender: FDA-Public Use
  Company Number: US-PFIZER INC-2010133286

PATIENT
  Age: 57 Year
  Sex: Male

DRUGS (9)
  1. CHANTIX [Suspect]
     Indication: SMOKING CESSATION THERAPY
     Dosage: UNK
     Dates: start: 20101018, end: 20101019
  2. DEPAKOTE [Concomitant]
     Dosage: UNK
  3. RISPERDAL [Concomitant]
     Dosage: UNK
  4. LEXAPRO [Concomitant]
     Dosage: UNK
  5. KLONOPIN [Concomitant]
     Dosage: UNK
  6. BENADRYL [Concomitant]
     Dosage: UNK
  7. VALSARTAN [Concomitant]
     Dosage: UNK
  8. TOPROL-XL [Concomitant]
     Dosage: UNK
  9. TRICOR [Concomitant]
     Dosage: UNK

REACTIONS (7)
  - AGGRESSION [None]
  - FATIGUE [None]
  - FEAR [None]
  - FEELING ABNORMAL [None]
  - MENTAL DISORDER [None]
  - NAUSEA [None]
  - NERVOUSNESS [None]
